FAERS Safety Report 5669142-7 (Version None)
Quarter: 2008Q1

REPORT INFORMATION
  Report Type: 
  Country: None (occurrence: None)
  Receive Date: 20080312
  Receipt Date: 20080312
  Transmission Date: 20080703
  Serious: Yes (Hospitalization, Other)
  Sender: FDA-Public Use
  Company Number: None

PATIENT
  Sex: Female
  Weight: 70.3075 kg

DRUGS (2)
  1. ADVAIR DISKUS 250/50 [Suspect]
     Indication: EMPHYSEMA
     Dosage: 1 PUFF 2 TIMES DAILY
     Dates: start: 19990501, end: 20070727
  2. ADVAIR DISKUS 250/50 [Suspect]
     Indication: PULMONARY FIBROSIS
     Dosage: 1 PUFF 2 TIMES DAILY
     Dates: start: 19990501, end: 20070727

REACTIONS (3)
  - ATRIAL FIBRILLATION [None]
  - CANDIDIASIS [None]
  - FATIGUE [None]
